FAERS Safety Report 5208777-2 (Version None)
Quarter: 2007Q1

REPORT INFORMATION
  Report Type: 
  Country: None (occurrence: None)
  Receive Date: 20070111
  Receipt Date: 20070111
  Transmission Date: 20070707
  Serious: Yes (Other)
  Sender: FDA-Public Use
  Company Number: None

PATIENT
  Age: 47 Year
  Sex: Male
  Weight: 99.7913 kg

DRUGS (2)
  1. AMOXICILLIN [Suspect]
     Indication: RESPIRATORY DISORDER
     Dosage: 500MG  PO; SEE NOTES
     Route: 048
     Dates: start: 20070106, end: 20070108
  2. WELLBUTRIN XL [Concomitant]

REACTIONS (6)
  - ANXIETY [None]
  - DEPRESSION [None]
  - FEAR [None]
  - INSOMNIA [None]
  - MALAISE [None]
  - THINKING ABNORMAL [None]
